FAERS Safety Report 4765030-9 (Version None)
Quarter: 2005Q3

REPORT INFORMATION
  Report Type: 
  Country: None (occurrence: None)
  Receive Date: 20050907
  Receipt Date: 20050826
  Transmission Date: 20060218
  Serious: Yes (Other)
  Sender: FDA-Public Use
  Company Number: KII-2005-0018404

PATIENT
  Sex: Male

DRUGS (1)
  1. OXYCONTIN [Suspect]
     Dosage: UNK, INHALATION
     Route: 055

REACTIONS (6)
  - COMA [None]
  - CONVULSION [None]
  - DRUG ABUSER [None]
  - EYE ROLLING [None]
  - TREMOR [None]
  - VOMITING [None]
